FAERS Safety Report 25706432 (Version 1)
Quarter: 2025Q3

REPORT INFORMATION
  Report Type: Spontaneous
  Country: CA (occurrence: CA)
  Receive Date: 20250820
  Receipt Date: 20250820
  Transmission Date: 20251021
  Serious: Yes (Other)
  Sender: MACLEODS
  Company Number: CA-MLMSERVICE-20250801-PI600161-00323-1

PATIENT

DRUGS (1)
  1. TRIAMCINOLONE ACETONIDE [Suspect]
     Active Substance: TRIAMCINOLONE ACETONIDE
     Indication: Ulcer
     Route: 026

REACTIONS (2)
  - Pyoderma gangrenosum [Recovering/Resolving]
  - Condition aggravated [Recovering/Resolving]
